FAERS Safety Report 12940018 (Version 1)
Quarter: 2016Q4

REPORT INFORMATION
  Report Type: Spontaneous
  Country: US (occurrence: US)
  Receive Date: 20161115
  Receipt Date: 20161115
  Transmission Date: 20170207
  Serious: No
  Sender: FDA-Public Use
  Company Number: US-B.I. PHARMACEUTICALS,INC./RIDGEFIELD-2016-BI-076323

PATIENT
  Sex: Female

DRUGS (1)
  1. SPIRIVA [Suspect]
     Active Substance: TIOTROPIUM BROMIDE MONOHYDRATE
     Indication: PRODUCT USED FOR UNKNOWN INDICATION
     Route: 055

REACTIONS (5)
  - Drug ineffective [Unknown]
  - Drug hypersensitivity [Unknown]
  - Facial bones fracture [Recovered/Resolved]
  - Aphonia [Unknown]
  - Hernia [Unknown]

NARRATIVE: CASE EVENT DATE: 2013
